FAERS Safety Report 6959665-2 (Version None)
Quarter: 2010Q3

REPORT INFORMATION
  Report Type: 
  Country: None (occurrence: None)
  Receive Date: 20100827
  Receipt Date: 20100811
  Transmission Date: 20110219
  Serious: Yes (Hospitalization)
  Sender: FDA-Public Use
  Company Number: 2010MA001695

PATIENT
  Age: 61 Year
  Sex: Female
  Weight: 54 kg

DRUGS (10)
  1. AMLODIPINE BESYLATE [Suspect]
     Indication: HYPERTENSION
     Dosage: 5 MG
  2. CANDESARTAN CILEXETIL [Suspect]
     Indication: HYPERTENSION
     Dosage: 4 MG
  3. PROPOFOL (CON.) [Concomitant]
  4. VECURONIUM BROMIDE [Concomitant]
  5. BROMIDE (CON.) [Concomitant]
  6. SEVOFLURANE (CON.) [Concomitant]
  7. PIPERACILLIN (CON.) [Concomitant]
  8. NEOSTIGMINE (CON.) [Concomitant]
  9. ATROPINE (CON.) [Concomitant]
  10. PREV MEDS [Concomitant]

REACTIONS (4)
  - DYSPNOEA [None]
  - LARYNGEAL OEDEMA [None]
  - RESPIRATORY ACIDOSIS [None]
  - STRIDOR [None]
